FAERS Safety Report 16017581 (Version 1)
Quarter: 2019Q1

REPORT INFORMATION
  Report Type: Report from Study
  Country: MX (occurrence: MX)
  Receive Date: 20190228
  Receipt Date: 20190228
  Transmission Date: 20190418
  Serious: Yes (Life-Threatening, Hospitalization, Other)
  Sender: FDA-Public Use
  Company Number: PHHY2018MX198337

PATIENT
  Age: 17 Year
  Sex: Male
  Weight: 49 kg

DRUGS (11)
  1. ARCOXIA [Concomitant]
     Active Substance: ETORICOXIB
     Dosage: 1 DF, PRN
     Route: 048
     Dates: start: 201711, end: 20181112
  2. COSENTYX [Suspect]
     Active Substance: SECUKINUMAB
     Indication: ANKYLOSING SPONDYLITIS
     Dosage: 150 MG, QMO
     Route: 030
     Dates: start: 20180709, end: 20181030
  3. PREDNISONE. [Concomitant]
     Active Substance: PREDNISONE
     Indication: IMMUNOSUPPRESSION
     Dosage: 0.5 DF, EVERY THIRD DAY
     Route: 048
     Dates: start: 201804
  4. ARCOXIA [Concomitant]
     Active Substance: ETORICOXIB
     Indication: PRODUCT USED FOR UNKNOWN INDICATION
     Dosage: 1 DF, PRN
     Route: 048
     Dates: start: 201708
  5. PREDNISONE. [Concomitant]
     Active Substance: PREDNISONE
     Dosage: 5 MG, QD
     Route: 048
  6. OMEPRAZOLE. [Concomitant]
     Active Substance: OMEPRAZOLE
     Indication: GASTRITIS
     Dosage: 20 MG, QD IN THE MORNING
     Route: 048
     Dates: start: 201708
  7. CELECOXIB. [Concomitant]
     Active Substance: CELECOXIB
     Indication: INFLAMMATION
     Dosage: 2 DF, UNK
     Route: 065
  8. ATENOLOL. [Concomitant]
     Active Substance: ATENOLOL
     Indication: PERICARDITIS
     Dosage: 0.5 DF, QD
     Route: 048
     Dates: start: 201801, end: 20181113
  9. PARACETAMOL [Concomitant]
     Active Substance: ACETAMINOPHEN
     Indication: PAIN
     Dosage: 1.5 DF, PRN
     Route: 048
     Dates: start: 201708
  10. PARACETAMOL [Concomitant]
     Active Substance: ACETAMINOPHEN
     Indication: PYREXIA
  11. METHOTREXATE. [Concomitant]
     Active Substance: METHOTREXATE
     Indication: ARTHROPATHY
     Dosage: 3 DF, 3 TABLETS ON THURSDAY AND 3 TABLETS ON FRIDAY
     Route: 048
     Dates: start: 201803, end: 201808

REACTIONS (12)
  - Aortic valve incompetence [Not Recovered/Not Resolved]
  - Tachycardia [Unknown]
  - Cardiac arrest [Not Recovered/Not Resolved]
  - Renal impairment [Unknown]
  - Multiple organ dysfunction syndrome [Unknown]
  - Gait inability [Unknown]
  - Infection [Unknown]
  - Cardiac failure [Unknown]
  - Haemoglobin decreased [Unknown]
  - Incorrect route of product administration [Unknown]
  - Hypotonia [Unknown]
  - Asthenia [Unknown]

NARRATIVE: CASE EVENT DATE: 20181112
